FAERS Safety Report 25289411 (Version 1)
Quarter: 2025Q2

REPORT INFORMATION
  Report Type: Report from Study
  Country: JP (occurrence: JP)
  Receive Date: 20250509
  Receipt Date: 20250509
  Transmission Date: 20250716
  Serious: Yes (Hospitalization)
  Sender: ELI LILLY AND COMPANY
  Company Number: JP-ELI_LILLY_AND_COMPANY-JP202505000528

PATIENT

DRUGS (1)
  1. TIRZEPATIDE [Suspect]
     Active Substance: TIRZEPATIDE
     Indication: Product used for unknown indication
     Route: 058

REACTIONS (6)
  - Fall [Unknown]
  - Hypoglycaemia [Unknown]
  - Dizziness [Unknown]
  - Nausea [Unknown]
  - Decreased immune responsiveness [Unknown]
  - Keratitis [Unknown]
